FAERS Safety Report 17833640 (Version 3)
Quarter: 2020Q4

REPORT INFORMATION
  Report Type: Spontaneous
  Country: JP (occurrence: JP)
  Receive Date: 20200528
  Receipt Date: 20201202
  Transmission Date: 20210113
  Serious: Yes (Other)
  Sender: FDA-Public Use
  Company Number: NVSJ2020JP005256

PATIENT
  Sex: Female

DRUGS (11)
  1. LETROZOLE. [Suspect]
     Active Substance: LETROZOLE
     Indication: FOETAL EXPOSURE DURING PREGNANCY
     Dosage: MATERNAL EXPOSURE PRIOR TO PREGNANCY,2.5 MG
     Route: 050
  2. CABERGOLINE. [Concomitant]
     Active Substance: CABERGOLINE
     Indication: FOETAL EXPOSURE DURING PREGNANCY
     Dosage: MATERNAL EXPOSURE PRIOR TO PREGNANCY,0.5 MG, QW
     Route: 050
  3. CLOMIFENE CITRATE [Concomitant]
     Active Substance: CLOMIPHENE
     Indication: FOETAL EXPOSURE DURING PREGNANCY
     Dosage: 50 MG
     Route: 050
  4. CLOMIFENE CITRATE [Concomitant]
     Active Substance: CLOMIPHENE
     Dosage: MATERNAL EXPOSURE PRIOR TO PREGNANCY,UNK
     Route: 050
  5. CHLORMADINONE ACETATE [Concomitant]
     Active Substance: CHLORMADINONE ACETATE
     Indication: FOETAL EXPOSURE DURING PREGNANCY
     Dosage: MATERNAL EXPOSURE PRIOR TO PREGNANCY,6 MG
     Route: 050
  6. BUSERELIN ACETATE [Concomitant]
     Active Substance: BUSERELIN ACETATE
     Indication: FOETAL EXPOSURE DURING PREGNANCY
     Dosage: MATERNAL EXPOSURE PRIOR TO PREGNANCY,300 UG, BID
     Route: 050
  7. HMG [Concomitant]
     Active Substance: GONADOTROPHIN, CHORIONIC
     Indication: FOETAL EXPOSURE DURING PREGNANCY
     Dosage: MATERNAL EXPOSURE PRIOR TO PREGNANCY,75 IU
     Route: 050
  8. CLOMIFENE CITRATE [Concomitant]
     Active Substance: CLOMIPHENE
     Dosage: MATERNAL EXPOSURE PRIOR TO PREGNANCY,UNK
     Route: 050
  9. DYDROGESTERONE [Concomitant]
     Active Substance: DYDROGESTERONE
     Indication: FOETAL EXPOSURE DURING PREGNANCY
     Dosage: MATERNAL EXPOSURE PRIOR TO PREGNANCY,15 MG
     Route: 050
  10. CABERGOLINE. [Concomitant]
     Active Substance: CABERGOLINE
     Dosage: 1 MG, QW
     Route: 050
  11. BUSERELIN ACETATE [Concomitant]
     Active Substance: BUSERELIN ACETATE
     Dosage: 300 UG, BID
     Route: 050

REACTIONS (2)
  - Low birth weight baby [Unknown]
  - Maternal exposure before pregnancy [Unknown]
